FAERS Safety Report 18263806 (Version 1)
Quarter: 2020Q3

REPORT INFORMATION
  Report Type: Spontaneous
  Country: CH (occurrence: CH)
  Receive Date: 20200914
  Receipt Date: 20200914
  Transmission Date: 20201103
  Serious: Yes (Life-Threatening, Hospitalization, Other)
  Sender: FDA-Public Use
  Company Number: CH-PFIZER INC-2020351253

PATIENT
  Age: 41 Year
  Sex: Female

DRUGS (10)
  1. OLANZAPIN [Suspect]
     Active Substance: OLANZAPINE
     Dosage: 2.5 MG, MAX 8/24 H IN THE EVENT OF SUICIDAL CRISIS
  2. REXULTI [Concomitant]
     Active Substance: BREXPIPRAZOLE
     Dosage: 1 MG, 1X/DAY
     Route: 048
  3. OLANZAPIN [Suspect]
     Active Substance: OLANZAPINE
     Dosage: 600 MG
     Dates: start: 20200830, end: 20200830
  4. TOPIRAMAT HELVEPHARM [Concomitant]
     Dosage: 50 MG (1?0?0?3)
     Route: 048
  5. VITAMIN D3 [Concomitant]
     Active Substance: CHOLECALCIFEROL
     Dosage: 0.5 ML, 1X/DAY
     Route: 048
  6. WELLBUTRIN [Suspect]
     Active Substance: BUPROPION HYDROCHLORIDE
     Dosage: 9000 MG
     Dates: end: 20200830
  7. PREGABALIN PFIZER [Concomitant]
     Active Substance: PREGABALIN
     Dosage: 50 MG, 2X/DAY
     Route: 048
  8. TEMESTA (LORAZEPAM) [Suspect]
     Active Substance: LORAZEPAM
     Dosage: 50 MG
     Route: 048
     Dates: end: 20200830
  9. BUPROPION [BUPROPION HYDROCHLORIDE] [Concomitant]
     Active Substance: BUPROPION HYDROCHLORIDE
     Dosage: 300 MG 2?0?0?0
  10. LORATADINA LAM [Concomitant]
     Dosage: UNK
     Route: 048

REACTIONS (6)
  - Electroencephalogram abnormal [Recovering/Resolving]
  - Dyskinesia [Recovered/Resolved]
  - Intentional overdose [Recovering/Resolving]
  - Poisoning [Recovering/Resolving]
  - Coma scale abnormal [Unknown]
  - Suicidal ideation [Recovering/Resolving]

NARRATIVE: CASE EVENT DATE: 20200830
